FAERS Safety Report 16909357 (Version 1)
Quarter: 2019Q4

REPORT INFORMATION
  Report Type: Report from Study
  Country: CA (occurrence: CA)
  Receive Date: 20191011
  Receipt Date: 20191011
  Transmission Date: 20200122
  Serious: Yes (Other)
  Sender: FDA-Public Use
  Company Number: CA-JNJFOC-20190444203

PATIENT
  Age: 20 Year
  Sex: Female
  Weight: 51.2 kg

DRUGS (1)
  1. STELARA [Suspect]
     Active Substance: USTEKINUMAB
     Indication: CROHN^S DISEASE
     Dosage: STRENGTH = 90 MG
     Route: 058
     Dates: start: 20171212

REACTIONS (10)
  - Post-traumatic stress disorder [Unknown]
  - Bronchitis [Unknown]
  - Asthma [Recovering/Resolving]
  - Social anxiety disorder [Unknown]
  - Panic attack [Unknown]
  - Viral upper respiratory tract infection [Recovered/Resolved]
  - Abdominal pain [Recovered/Resolved]
  - Biopsy colon [Unknown]
  - Depression [Unknown]
  - Impaired healing [Recovered/Resolved]

NARRATIVE: CASE EVENT DATE: 2019
